FAERS Safety Report 8237033-3 (Version None)
Quarter: 2012Q1

REPORT INFORMATION
  Report Type: 
  Country: None (occurrence: None)
  Receive Date: 20120327
  Receipt Date: 20120323
  Transmission Date: 20120608
  Serious: Yes (Other)
  Sender: FDA-Public Use
  Company Number: PHHY2009NL43843

PATIENT
  Age: 25 Year
  Sex: Male

DRUGS (2)
  1. CONCERTA [Concomitant]
  2. METHYLPHENIDATE [Suspect]
     Indication: ATTENTION DEFICIT/HYPERACTIVITY DISORDER
     Dosage: UNK

REACTIONS (2)
  - TESTICULAR PAIN [None]
  - EJACULATION DISORDER [None]
